FAERS Safety Report 5735702-8 (Version None)
Quarter: 2008Q2

REPORT INFORMATION
  Report Type: 
  Country: None (occurrence: None)
  Receive Date: 20080512
  Receipt Date: 20080502
  Transmission Date: 20081010
  Serious: Yes (Congenital Anomaly, Other)
  Sender: FDA-Public Use
  Company Number: GB-ABBOTT-07P-167-0415926-00

PATIENT
  Sex: Female

DRUGS (1)
  1. VALPROIC ACID [Suspect]
     Indication: DRUG EXPOSURE DURING PREGNANCY
     Route: 064

REACTIONS (26)
  - ABNORMAL BEHAVIOUR [None]
  - ASOCIAL BEHAVIOUR [None]
  - CONGENITAL EYE DISORDER [None]
  - CONGENITAL EYELID MALFORMATION [None]
  - CONGENITAL HAND MALFORMATION [None]
  - CONGENITAL NOSE MALFORMATION [None]
  - CONGENITAL ORAL MALFORMATION [None]
  - DEVELOPMENTAL DELAY [None]
  - DYSGRAPHIA [None]
  - EAR MALFORMATION [None]
  - FEEDING DISORDER NEONATAL [None]
  - FOETAL ANTICONVULSANT SYNDROME [None]
  - FOOT DEFORMITY [None]
  - HEAD INJURY [None]
  - HEARING IMPAIRED [None]
  - HYPERACUSIS [None]
  - IMPULSIVE BEHAVIOUR [None]
  - JOINT INSTABILITY [None]
  - LEARNING DISORDER [None]
  - LIMB HYPOPLASIA CONGENITAL [None]
  - MOTOR DYSFUNCTION [None]
  - MOVEMENT DISORDER [None]
  - SKULL MALFORMATION [None]
  - SPEECH DISORDER [None]
  - SPEECH DISORDER DEVELOPMENTAL [None]
  - WEIGHT DECREASE NEONATAL [None]
